FAERS Safety Report 10246776 (Version 1)
Quarter: 2014Q2

REPORT INFORMATION
  Report Type: Report from Study
  Country: BR (occurrence: BR)
  Receive Date: 20140619
  Receipt Date: 20140619
  Transmission Date: 20141212
  Serious: Yes (Other)
  Sender: FDA-Public Use
  Company Number: PHHY2014BR075449

PATIENT
  Sex: Female
  Weight: 85.7 kg

DRUGS (6)
  1. DIOVAN HCT [Suspect]
     Indication: HYPERTENSION
     Dosage: 1 DF (160/12.5 MG) AFTER BREAKFAST
     Route: 048
  2. HUMAN MONOSULIN [Suspect]
     Indication: DIABETES MELLITUS
     Dosage: 28 U IN THE MORNING
  3. HUMAN MONOSULIN [Suspect]
     Dosage: 8 U AT NIGHT
  4. PURAN T4 [Concomitant]
     Indication: THYROID DISORDER
     Dosage: UNK UKN, UNK
  5. ALOPURINOL [Concomitant]
     Indication: BLOOD URIC ACID ABNORMAL
     Dosage: UNK UKN, UNK
  6. LEXOTAN [Concomitant]
     Indication: RELAXATION THERAPY
     Dosage: UNK UKN, UNK

REACTIONS (4)
  - Eye disorder [Recovering/Resolving]
  - Visual impairment [Recovering/Resolving]
  - Renal cyst [Recovering/Resolving]
  - Hearing impaired [Recovering/Resolving]
